FAERS Safety Report 8922063 (Version 3)
Quarter: 2012Q4

REPORT INFORMATION
  Report Type: 
  Country: JP (occurrence: JP)
  Receive Date: 20121123
  Receipt Date: 20121226
  Transmission Date: 20130627
  Serious: Yes (Other)
  Sender: FDA-Public Use
  Company Number: PHHY2012JP106278

PATIENT

DRUGS (2)
  1. NEORAL [Suspect]
     Indication: BEHCET^S SYNDROME
  2. COLCHICINE [Interacting]
     Indication: BEHCET^S SYNDROME
     Route: 048

REACTIONS (5)
  - Renal disorder [Recovered/Resolved]
  - Eye inflammation [Recovered/Resolved]
  - Haemorrhagic diathesis [Recovered/Resolved]
  - Drug interaction [Recovered/Resolved]
  - Blood uric acid increased [Unknown]
